FAERS Safety Report 7426860-8 (Version None)
Quarter: 2011Q2

REPORT INFORMATION
  Report Type: 
  Country: None (occurrence: None)
  Receive Date: 20110415
  Receipt Date: 20110415
  Transmission Date: 20111010
  Serious: No
  Sender: FDA-Public Use
  Company Number: None

PATIENT
  Sex: Female
  Weight: 58.9676 kg

DRUGS (1)
  1. DEXTROAMPHETAMINE [Suspect]
     Indication: ATTENTION DEFICIT/HYPERACTIVITY DISORDER
     Dosage: 1 DAILY PO
     Route: 048
     Dates: start: 20110411, end: 20110414

REACTIONS (3)
  - HEADACHE [None]
  - PRODUCT SUBSTITUTION ISSUE [None]
  - NAUSEA [None]
